FAERS Safety Report 6315909-1 (Version None)
Quarter: 2009Q3

REPORT INFORMATION
  Report Type: 
  Country: None (occurrence: None)
  Receive Date: 20090818
  Receipt Date: 20090802
  Transmission Date: 20100115
  Serious: Yes (Other)
  Sender: FDA-Public Use
  Company Number: CHPA2009US16744

PATIENT
  Age: 22 Year
  Sex: Male
  Weight: 72.6 kg

DRUGS (2)
  1. NODOZ (NCH) (CAFFEINE) CAPLET [Suspect]
     Indication: SOMNOLENCE
     Dosage: 400 MG, ONCE/SINGLE, ORAL; 200 MG, ONCE/SINGLE, VIA; FALSA
     Route: 048
     Dates: start: 20090802, end: 20090802
  2. NODOZ (NCH) (CAFFEINE) CAPLET [Suspect]
     Indication: SOMNOLENCE
     Dosage: 400 MG, ONCE/SINGLE, ORAL; 200 MG, ONCE/SINGLE, VIA; FALSA
     Route: 048
     Dates: start: 20090802

REACTIONS (5)
  - DRUG ABUSE [None]
  - ENERGY INCREASED [None]
  - INCORRECT ROUTE OF DRUG ADMINISTRATION [None]
  - INSOMNIA [None]
  - WRONG TECHNIQUE IN DRUG USAGE PROCESS [None]
